FAERS Safety Report 5313556-1 (Version None)
Quarter: 2007Q2

REPORT INFORMATION
  Report Type: 
  Country: None (occurrence: None)
  Receive Date: 20070424
  Receipt Date: 20061101
  Transmission Date: 20071010
  Serious: No
  Sender: FDA-Public Use
  Company Number: STI-2006-00729

PATIENT
  Age: 11 Year
  Sex: Female

DRUGS (2)
  1. 829A ERYTHROMYCIN 2% GEL (ERYTHROMYCIN TOPICAL) (ERYTHROMYCIN) (GEL) [Suspect]
     Indication: ACNE
     Dosage: AT NIGHT TOPICAL
     Route: 061
     Dates: start: 20060101, end: 20060101
  2. DIFFERIN [Suspect]
     Indication: ACNE
     Dosage: IN
     Dates: start: 20060101

REACTIONS (1)
  - DRY SKIN [None]
